FAERS Safety Report 5629721-X (Version None)
Quarter: 2008Q1

REPORT INFORMATION
  Report Type: 
  Country: None (occurrence: None)
  Receive Date: 20080218
  Receipt Date: 20080208
  Transmission Date: 20080703
  Serious: Yes (Hospitalization, Other)
  Sender: FDA-Public Use
  Company Number: US-MERCK-0608USA02225

PATIENT
  Age: 89 Year
  Sex: Female

DRUGS (27)
  1. FOSAMAX [Suspect]
     Indication: OSTEOPOROSIS
     Route: 048
     Dates: start: 19981001, end: 20020101
  2. FOSAMAX [Suspect]
     Route: 048
     Dates: start: 20020101, end: 20030101
  3. FOSAMAX [Suspect]
     Route: 048
     Dates: start: 20030101, end: 20050701
  4. SULFAMETHOXAZOLE [Concomitant]
     Indication: URINARY TRACT INFECTION
     Route: 065
     Dates: start: 19990712
  5. SULFAMETHOXAZOLE [Concomitant]
     Route: 065
     Dates: start: 19990921
  6. SULFAMETHOXAZOLE [Concomitant]
     Route: 065
     Dates: start: 20011002
  7. SULFAMETHOXAZOLE [Concomitant]
     Route: 065
     Dates: start: 20020312
  8. SULFAMETHOXAZOLE [Concomitant]
     Route: 065
     Dates: start: 20020724
  9. CEPHALEXIN [Concomitant]
     Indication: URINARY TRACT INFECTION
     Route: 065
     Dates: start: 19991207
  10. CEPHALEXIN [Concomitant]
     Route: 065
     Dates: start: 20000107
  11. CEPHALEXIN [Concomitant]
     Route: 065
     Dates: start: 20000209
  12. CIPROFLOXACIN HYDROCHLORIDE [Concomitant]
     Indication: URINARY TRACT INFECTION
     Route: 065
     Dates: start: 20050628
  13. CIPROFLOXACIN HYDROCHLORIDE [Concomitant]
     Route: 065
     Dates: start: 20050909
  14. [THERAPY UNSPECIFIED] [Concomitant]
     Indication: HYPERTENSION
     Route: 065
     Dates: start: 19960101, end: 20020101
  15. VIOXX [Concomitant]
     Indication: ARTHRALGIA
     Route: 065
  16. CALCIUM (UNSPECIFIED) AND VITAMIN D (UNSPECIFIED) [Concomitant]
     Indication: RESORPTION BONE INCREASED
     Route: 065
  17. SUDAFED 24 HOUR TABLETS [Concomitant]
     Indication: SINUS CONGESTION
     Route: 065
  18. UNIVASC [Concomitant]
     Indication: HYPERTENSION
     Route: 065
  19. LEVOXYL [Concomitant]
     Route: 065
  20. GLUCOSAMINE [Concomitant]
     Route: 065
  21. CHONDROITIN [Concomitant]
     Route: 065
  22. VITAMIN E [Concomitant]
     Route: 065
  23. ANCEF [Concomitant]
     Route: 065
  24. BICITRA [Concomitant]
     Route: 065
  25. LOPRESSOR [Concomitant]
     Route: 065
  26. SYNTHROID [Concomitant]
     Route: 048
  27. PREMPRO [Concomitant]
     Route: 065

REACTIONS (11)
  - ANXIETY [None]
  - ARTHROPATHY [None]
  - FALL [None]
  - FUNGAL INFECTION [None]
  - HIP FRACTURE [None]
  - OSTEOARTHRITIS [None]
  - OSTEOMYELITIS [None]
  - OSTEONECROSIS [None]
  - UPPER LIMB FRACTURE [None]
  - URINARY TRACT INFECTION [None]
  - WEIGHT DECREASED [None]
